FAERS Safety Report 10377396 (Version 1)
Quarter: 2014Q3

REPORT INFORMATION
  Report Type: Spontaneous
  Country: JP (occurrence: JP)
  Receive Date: 20140812
  Receipt Date: 20140812
  Transmission Date: 20150326
  Serious: No
  Sender: FDA-Public Use
  Company Number: PHHY2011JP121949

PATIENT
  Age: 70 Year
  Sex: Male

DRUGS (4)
  1. PREDNISOLONE. [Concomitant]
     Active Substance: PREDNISOLONE
     Dates: start: 20100913
  2. GLIVEC [Suspect]
     Active Substance: IMATINIB MESYLATE
     Indication: CHRONIC MYELOID LEUKAEMIA
     Dates: start: 20100830, end: 20100903
  3. TASIGNA [Suspect]
     Active Substance: NILOTINIB
     Dates: start: 20101027
  4. TASIGNA [Suspect]
     Active Substance: NILOTINIB
     Dates: start: 20100913

REACTIONS (4)
  - Pyrexia [Recovering/Resolving]
  - Altered state of consciousness [Recovering/Resolving]
  - Incontinence [Recovering/Resolving]
  - Hot flush [Not Recovered/Not Resolved]
